FAERS Safety Report 21336598 (Version 1)
Quarter: 2022Q3

REPORT INFORMATION
  Report Type: Spontaneous
  Country: US (occurrence: None)
  Receive Date: 20220914
  Receipt Date: 20220914
  Transmission Date: 20221027
  Serious: Yes (Hospitalization)
  Sender: FDA-Public Use
  Company Number: None

PATIENT
  Age: 73 Year
  Sex: Female
  Weight: 60.75 kg

DRUGS (2)
  1. BEBTELOVIMAB [Suspect]
     Active Substance: BEBTELOVIMAB
     Indication: COVID-19
     Dosage: OTHER FREQUENCY : SINGLE DOSE;?
     Route: 042
     Dates: start: 20220913, end: 20220913
  2. BEBTELOVIMAB [Concomitant]
     Active Substance: BEBTELOVIMAB
     Dates: start: 20220913, end: 20220913

REACTIONS (10)
  - Syncope [None]
  - Infusion related reaction [None]
  - Tachycardia [None]
  - Asthenia [None]
  - Dizziness [None]
  - Unresponsive to stimuli [None]
  - Snoring [None]
  - Respiration abnormal [None]
  - Blood pressure increased [None]
  - Cyanosis [None]

NARRATIVE: CASE EVENT DATE: 20220913
